FAERS Safety Report 16211228 (Version 2)
Quarter: 2019Q2

REPORT INFORMATION
  Report Type: Spontaneous
  Country: US (occurrence: US)
  Receive Date: 20190418
  Receipt Date: 20190520
  Transmission Date: 20190711
  Serious: No
  Sender: FDA-Public Use
  Company Number: US-LUPIN PHARMACEUTICALS INC.-2019-02002

PATIENT
  Sex: Female

DRUGS (1)
  1. FLUOCINONIDE TOPICAL SOLUTION USP, 0.05% [Suspect]
     Active Substance: FLUOCINONIDE
     Indication: RASH
     Dosage: 2 TO 3 TIMES A DAY, ONE WEEK ON AND ONE WEEK OFF
     Route: 061

REACTIONS (1)
  - Hair growth rate abnormal [Not Recovered/Not Resolved]
